FAERS Safety Report 17911366 (Version 1)
Quarter: 2020Q2

REPORT INFORMATION
  Report Type: Spontaneous
  Country: US (occurrence: US)
  Receive Date: 20200618
  Receipt Date: 20200618
  Transmission Date: 20200714
  Serious: Yes (Life-Threatening, Hospitalization, Other)
  Sender: FDA-Public Use
  Company Number: US-TORRENT-00010267

PATIENT
  Age: 82 Year
  Sex: Female

DRUGS (3)
  1. WARFARIN [Concomitant]
     Active Substance: WARFARIN
     Indication: ATRIAL FIBRILLATION
     Dosage: UNKNOWN
  2. RISPERIDONE. [Suspect]
     Active Substance: RISPERIDONE
     Indication: SCHIZOPHRENIA
     Dosage: UNKNOWN
  3. METOPROLOL. [Concomitant]
     Active Substance: METOPROLOL
     Indication: ATRIAL FIBRILLATION
     Dosage: UNKNOWN

REACTIONS (6)
  - Pulseless electrical activity [Recovered/Resolved]
  - Hypothermia [Recovered/Resolved]
  - Sinus bradycardia [Recovered/Resolved]
  - Hypotension [Recovered/Resolved]
  - Cardiac arrest [Recovered/Resolved]
  - Encephalopathy [Recovered/Resolved]
